FAERS Safety Report 8340317-1 (Version None)
Quarter: 2012Q2

REPORT INFORMATION
  Report Type: 
  Country: None (occurrence: None)
  Receive Date: 20120507
  Receipt Date: 20120507
  Transmission Date: 20120825
  Serious: Yes (Other)
  Sender: FDA-Public Use
  Company Number: None

PATIENT
  Age: 66 Year
  Sex: Female
  Weight: 81.646 kg

DRUGS (2)
  1. ANIMAS PING [Suspect]
     Indication: DIABETES MELLITUS
     Dosage: |DOSAGETEXT: N/A|
     Dates: start: 20101101, end: 20120313
  2. INSULIN [Suspect]

REACTIONS (2)
  - BLOOD GLUCOSE INCREASED [None]
  - MEDICAL DEVICE COMPLICATION [None]
